FAERS Safety Report 9048785 (Version 1)
Quarter: 2013Q2

REPORT INFORMATION
  Report Type: Spontaneous
  Country: US (occurrence: None)
  Receive Date: 20130130
  Receipt Date: 20130130
  Transmission Date: 20140414
  Serious: Yes (Hospitalization)
  Sender: FDA-Public Use
  Company Number: None

PATIENT
  Age: 29 Year
  Sex: Male
  Weight: 94.35 kg

DRUGS (5)
  1. LURASIDONE [Suspect]
     Indication: SCHIZOAFFECTIVE DISORDER
     Route: 048
     Dates: start: 20130109, end: 20130122
  2. PROLIXIN [Concomitant]
  3. DEPAKOTE ER [Concomitant]
  4. BROMOCRIPTINE [Concomitant]
  5. COGENTIN [Concomitant]

REACTIONS (3)
  - Psychotic disorder [None]
  - Suicidal ideation [None]
  - Hallucination [None]
